FAERS Safety Report 5202017-6 (Version None)
Quarter: 2007Q1

REPORT INFORMATION
  Report Type: 
  Country: None (occurrence: None)
  Receive Date: 20070109
  Receipt Date: 20061228
  Transmission Date: 20070707
  Serious: Yes (Life-Threatening, Hospitalization)
  Sender: FDA-Public Use
  Company Number: FR-JNJFOC-20061206972

PATIENT
  Age: 43 Year
  Sex: Male

DRUGS (6)
  1. HALDOL [Suspect]
     Route: 065
  2. HALDOL [Suspect]
     Indication: PSYCHOTIC DISORDER
     Route: 065
  3. ARTANE [Suspect]
     Route: 048
  4. ARTANE [Suspect]
     Indication: DRUG USE FOR UNKNOWN INDICATION
     Route: 048
  5. NOZINAN [Suspect]
     Route: 048
  6. NOZINAN [Suspect]
     Indication: DRUG USE FOR UNKNOWN INDICATION
     Route: 048

REACTIONS (2)
  - COLITIS ISCHAEMIC [None]
  - SHOCK [None]
